FAERS Safety Report 5545911-9 (Version None)
Quarter: 2007Q4

REPORT INFORMATION
  Report Type: 
  Country: None (occurrence: None)
  Receive Date: 20071211
  Receipt Date: 20071008
  Transmission Date: 20080405
  Serious: No
  Sender: FDA-Public Use
  Company Number: US-ASTRAZENECA-2007UW23377

PATIENT
  Age: 50 Year
  Sex: Female

DRUGS (3)
  1. SYMBICORT [Suspect]
     Route: 055
  2. SINGULAIR [Concomitant]
  3. FLONASE [Concomitant]

REACTIONS (1)
  - GLOSSITIS [None]
